FAERS Safety Report 7439752-5 (Version None)
Quarter: 2011Q2

REPORT INFORMATION
  Report Type: 
  Country: None (occurrence: None)
  Receive Date: 20110427
  Receipt Date: 20110422
  Transmission Date: 20111010
  Serious: Yes (Death, Hospitalization)
  Sender: FDA-Public Use
  Company Number: PHHY2011NL24762

PATIENT
  Sex: Male

DRUGS (3)
  1. ZOMETA [Suspect]
     Dosage: 4 MG/5 ML, UNK
     Route: 042
     Dates: end: 20110405
  2. ZOMETA [Suspect]
     Indication: PROSTATE CANCER METASTATIC
     Dosage: 4 MG/5 ML PER 28 DAYS
     Route: 042
     Dates: start: 20110127
  3. ZOMETA [Suspect]
     Dosage: 4 MG/5 ML PER 28 DAYS
     Route: 042
     Dates: start: 20110224

REACTIONS (3)
  - GENERAL PHYSICAL HEALTH DETERIORATION [None]
  - MALAISE [None]
  - DEATH [None]
